FAERS Safety Report 9500407 (Version 4)
Quarter: 2014Q2

REPORT INFORMATION
  Report Type: Spontaneous
  Country: US (occurrence: None)
  Receive Date: 20130107
  Receipt Date: 20130724
  Transmission Date: 20141212
  Serious: Yes (Other)
  Sender: FDA-Public Use
  Company Number: PHEH2012US023420

PATIENT
  Age: 48 Year
  Sex: Female
  Weight: 64.4 kg

DRUGS (1)
  1. GILENYA [Suspect]
     Indication: MULTIPLE SCLEROSIS
     Route: 048
     Dates: start: 201104

REACTIONS (3)
  - Blood pressure increased [None]
  - Weight decreased [None]
  - Decreased appetite [None]
